FAERS Safety Report 11811940 (Version 2)
Quarter: 2016Q2

REPORT INFORMATION
  Report Type: Report from Study
  Country: BR (occurrence: BR)
  Receive Date: 20151208
  Receipt Date: 20160401
  Transmission Date: 20160815
  Serious: Yes (Other)
  Sender: FDA-Public Use
  Company Number: PHHY2015BR094913

PATIENT
  Age: 17 Year
  Sex: Male
  Weight: 42 kg

DRUGS (3)
  1. EXJADE [Suspect]
     Active Substance: DEFERASIROX
     Indication: SICKLE CELL ANAEMIA
     Dosage: 1 DF OF 500 MG (10 MG/KG), QD
     Route: 048
  2. HIDROXIUREA [Suspect]
     Active Substance: HYDROXYUREA
     Indication: PRODUCT USED FOR UNKNOWN INDICATION
     Route: 065
  3. EXJADE [Suspect]
     Active Substance: DEFERASIROX
     Dosage: 2 DF OF 500 MG (20 MG/KG), QD
     Route: 048

REACTIONS (11)
  - Osteomyelitis [Not Recovered/Not Resolved]
  - Abasia [Unknown]
  - Weight decreased [Unknown]
  - Serum ferritin increased [Unknown]
  - Haemoglobin decreased [Unknown]
  - Urinary tract infection [Not Recovered/Not Resolved]
  - Dysphagia [Unknown]
  - Eating disorder [Unknown]
  - Skin ulcer [Not Recovered/Not Resolved]
  - Cerebrovascular accident [Unknown]
  - Paralysis [Unknown]

NARRATIVE: CASE EVENT DATE: 201501
